FAERS Safety Report 4455514-5 (Version None)
Quarter: 2004Q3

REPORT INFORMATION
  Report Type: 
  Country: None (occurrence: None)
  Receive Date: 20040917
  Receipt Date: 20040907
  Transmission Date: 20050211
  Serious: Yes (Hospitalization, Disabling, Other)
  Sender: FDA-Public Use
  Company Number: 2004064371

PATIENT
  Age: 74 Year
  Sex: Female
  Weight: 49.8957 kg

DRUGS (8)
  1. LIPITOR [Suspect]
     Indication: BLOOD CHOLESTEROL INCREASED
     Dosage: 20 MG (20 MG, 1 IN 1 D),
  2. NICOTINIC ACID [Suspect]
     Indication: BLOOD CHOLESTEROL INCREASED
     Dosage: 1000 MG (1 IN 1 D),
  3. VITAMINS (VITAMINS) [Concomitant]
  4. TOCOPHEROL CONCENTRATE CAP [Concomitant]
  5. VITAMIN B-COMPLEX (VITAMIN B-COMPLEX) [Concomitant]
  6. ASCORBIC ACID [Concomitant]
  7. ERGOCALCIFEROL (ERGOCALCIFEROL) [Concomitant]
  8. CALCIUM (CALCIUM) [Concomitant]

REACTIONS (11)
  - ACTIVITIES OF DAILY LIVING IMPAIRED [None]
  - ASTHENIA [None]
  - BLOOD CHOLESTEROL INCREASED [None]
  - DYSSTASIA [None]
  - FATIGUE [None]
  - FLUSHING [None]
  - GASTROINTESTINAL CARCINOMA [None]
  - LOW DENSITY LIPOPROTEIN INCREASED [None]
  - MUSCULAR WEAKNESS [None]
  - NERVE COMPRESSION [None]
  - SPINAL DISORDER [None]
